FAERS Safety Report 5049475-8 (Version None)
Quarter: 2006Q3

REPORT INFORMATION
  Report Type: 
  Country: None (occurrence: None)
  Receive Date: 20060711
  Receipt Date: 20060711
  Transmission Date: 20061208
  Serious: Yes (Hospitalization)
  Sender: FDA-Public Use
  Company Number: None

PATIENT
  Age: 56 Year
  Sex: Female

DRUGS (1)
  1. ACYCLOVIR [Suspect]
     Dosage: 700 MG Q8H  IV DRIP
     Route: 041
     Dates: start: 20060619, end: 20060622

REACTIONS (1)
  - BLOOD CREATININE INCREASED [None]
